FAERS Safety Report 23556188 (Version 1)
Quarter: 2024Q1

REPORT INFORMATION
  Report Type: Report from Study
  Country: US (occurrence: US)
  Receive Date: 20240223
  Receipt Date: 20240223
  Transmission Date: 20240410
  Serious: Yes (Other)
  Sender: FDA-Public Use
  Company Number: US-ABBVIE-5319521

PATIENT
  Sex: Female

DRUGS (4)
  1. SKYRIZI [Suspect]
     Active Substance: RISANKIZUMAB-RZAA
     Indication: Psoriatic arthropathy
     Dosage: FORM STRENGTH WAS 150 MILLIGRAM.?WEEK ZERO.
     Route: 058
     Dates: start: 20230226, end: 20230226
  2. SKYRIZI [Suspect]
     Active Substance: RISANKIZUMAB-RZAA
     Indication: Crohn^s disease
     Dosage: FORM STRENGTH WAS 150 MILLIGRAM.?WEEK FOUR
     Route: 058
     Dates: start: 20230326, end: 20230326
  3. SKYRIZI [Suspect]
     Active Substance: RISANKIZUMAB-RZAA
     Indication: Systemic lupus erythematosus
     Dosage: FORM STRENGTH WAS 150 MILLIGRAM.?THEREAFTER
     Route: 058
     Dates: start: 20230618
  4. SKYRIZI [Suspect]
     Active Substance: RISANKIZUMAB-RZAA
     Indication: Psoriasis
     Route: 058

REACTIONS (6)
  - Carpal tunnel syndrome [Not Recovered/Not Resolved]
  - Incision site impaired healing [Unknown]
  - Incision site pain [Unknown]
  - Scar [Unknown]
  - Scab [Unknown]
  - Skin discolouration [Unknown]

NARRATIVE: CASE EVENT DATE: 20230101
